FAERS Safety Report 5339488-0 (Version None)
Quarter: 2007Q2

REPORT INFORMATION
  Report Type: 
  Country: None (occurrence: None)
  Receive Date: 20070525
  Receipt Date: 20070523
  Transmission Date: 20071010
  Serious: Yes (Other)
  Sender: FDA-Public Use
  Company Number: TPG2007A00411

PATIENT
  Age: 70 Year
  Sex: Female

DRUGS (9)
  1. LANSOPRAZOLE [Suspect]
     Indication: GASTROOESOPHAGEAL REFLUX DISEASE
     Dosage: SEE IMAGE
     Route: 048
     Dates: end: 20070320
  2. LANSOPRAZOLE [Suspect]
     Indication: HIATUS HERNIA
     Dosage: SEE IMAGE
     Route: 048
     Dates: end: 20070320
  3. BLOPRESS PLUS (TABLEST) [Concomitant]
  4. ASPIRIN CARDIC (ACETYLSALICYLIC ACID) (TABLETS) [Concomitant]
  5. SERTRALINE (SERTRALINE) (50 MILLIGRAM, TABLETS) [Concomitant]
  6. TILUR (ACEMETACIN) (60 MILLIGRAM, CAPSULES) [Concomitant]
  7. DAFALGAN (PARACETAMOL) (TABLETS) [Concomitant]
  8. SYMCORA (SIMVASTATIN) (TABLETS) [Concomitant]
  9. MEPHANOL (ALLOPURINOL) 100MG TABS. [Concomitant]

REACTIONS (2)
  - COLITIS MICROSCOPIC [None]
  - HYPOGAMMAGLOBULINAEMIA [None]
